FAERS Safety Report 4884714-5 (Version None)
Quarter: 2005Q4

REPORT INFORMATION
  Report Type: 
  Country: None (occurrence: None)
  Receive Date: 20051201
  Receipt Date: 20050901
  Transmission Date: 20060501
  Serious: No
  Sender: FDA-Public Use
  Company Number: 2005PV001735

PATIENT
  Age: 79 Year
  Sex: Female
  Weight: 58.514 kg

DRUGS (3)
  1. BYETTA [Suspect]
     Indication: DIABETES MELLITUS NON-INSULIN-DEPENDENT
     Dosage: 5 MCG; BID; SC
     Route: 058
     Dates: start: 20050809
  2. AMARYL [Concomitant]
  3. GLIPIZIDE [Concomitant]

REACTIONS (3)
  - ERUCTATION [None]
  - NAUSEA [None]
  - WEIGHT DECREASED [None]
